FAERS Safety Report 9327116 (Version 1)
Quarter: 2013Q2

REPORT INFORMATION
  Report Type: Spontaneous
  Country: US (occurrence: None)
  Receive Date: 20130530
  Receipt Date: 20130530
  Transmission Date: 20140414
  Serious: Yes (Hospitalization)
  Sender: FDA-Public Use
  Company Number: 1726454

PATIENT
  Age: 61 Year
  Sex: Female
  Weight: 107.73 kg

DRUGS (4)
  1. PIPERACILLIN/TAZOBACTAM [Suspect]
     Indication: PSEUDOMONAS INFECTION
     Route: 041
     Dates: start: 20130315, end: 20130329
  2. STERILE WATER [Suspect]
     Route: 042
     Dates: start: 20130315, end: 20130329
  3. SODIUM CHLORIDE [Suspect]
     Route: 042
     Dates: start: 20130315, end: 20130329
  4. VANCOMYCIN HYDROCHLORIDE [Suspect]
     Indication: POSTOPERATIVE WOUND INFECTION
     Route: 042
     Dates: start: 20130315, end: 20130329

REACTIONS (5)
  - Pneumonia [None]
  - Influenza like illness [None]
  - Skin irritation [None]
  - Infusion site irritation [None]
  - Wrong technique in drug usage process [None]
